FAERS Safety Report 11735099 (Version 1)
Quarter: 2015Q4

REPORT INFORMATION
  Report Type: Spontaneous
  Country: US (occurrence: None)
  Receive Date: 20151112
  Receipt Date: 20151112
  Transmission Date: 20160304
  Serious: Yes (Life-Threatening, Hospitalization)
  Sender: FDA-Public Use
  Company Number: None

PATIENT
  Age: 71 Year
  Sex: Female
  Weight: 47.63 kg

DRUGS (5)
  1. VITAMIN B COMPLEX [Concomitant]
     Active Substance: CYANOCOBALAMIN\DEXPANTHENOL\NIACINAMIDE\PYRIDOXINE HYDROCHLORIDE\RIBOFLAVIN 5^-PHOSPHATE SODIUM\THIAMINE HYDROCHLORIDE\VITAMIN B COMPLEX
  2. VITAMIN D [Concomitant]
     Active Substance: CHOLECALCIFEROL
  3. CHLORTHALIDONE. [Suspect]
     Active Substance: CHLORTHALIDONE
     Indication: POLYURIA
     Dosage: 1 PILL
     Route: 048
     Dates: start: 20121212, end: 20151017
  4. VITAMIN B12 [Concomitant]
     Active Substance: CYANOCOBALAMIN
  5. METOPROLOL GENERIC FOR LOPRESSOR [Concomitant]

REACTIONS (1)
  - Blood potassium decreased [None]

NARRATIVE: CASE EVENT DATE: 20151007
